FAERS Safety Report 7531173-X (Version None)
Quarter: 2011Q2

REPORT INFORMATION
  Report Type: 
  Country: None (occurrence: None)
  Receive Date: 20110608
  Receipt Date: 20110601
  Transmission Date: 20111010
  Serious: Yes (Other)
  Sender: FDA-Public Use
  Company Number: CH-US-EMD SERONO, INC.-7058576

PATIENT
  Sex: Male
  Weight: 95 kg

DRUGS (4)
  1. ATACAND [Concomitant]
     Route: 048
  2. SELIPRAM [Concomitant]
     Route: 048
  3. REBIF [Suspect]
     Indication: PRODUCT USED FOR UNKNOWN INDICATION
     Dates: start: 20070101
  4. LEXOTANIL [Concomitant]
     Route: 048

REACTIONS (1)
  - PSORIASIS [None]
